FAERS Safety Report 9406910 (Version 2)
Quarter: 2013Q4

REPORT INFORMATION
  Report Type: Report from Study
  Country: US (occurrence: US)
  Receive Date: 20130718
  Receipt Date: 20131121
  Transmission Date: 20140711
  Serious: Yes (Death)
  Sender: FDA-Public Use
  Company Number: PHEH2013US015210

PATIENT
  Age: 86 Year
  Sex: Female
  Weight: 59.41 kg

DRUGS (8)
  1. EXELON PATCH [Suspect]
     Indication: DEMENTIA ALZHEIMER^S TYPE
     Dosage: 9.5 MG, DAILY
     Route: 062
     Dates: start: 20090922
  2. VESICARE [Concomitant]
     Dosage: UNK UKN, DAILY
     Route: 048
  3. ZOCEF//CEFUROXIME AXETIL [Concomitant]
     Dosage: UNK UKN, DAILY
     Route: 048
  4. NAMENDA [Concomitant]
     Dosage: 10 MG, BID
     Route: 048
     Dates: start: 20091215
  5. AMLODIPINE BESYLATE [Concomitant]
     Dosage: UNK UKN, DAILY
     Route: 048
  6. ATENOLOL [Concomitant]
     Dosage: UNK UKN, DAILY
     Route: 048
  7. FOSAMAX [Concomitant]
     Dosage: UNK UKN, DAILY
     Route: 048
  8. SYNTHROID [Concomitant]
     Dosage: UNK UKN, DAILY
     Route: 048

REACTIONS (1)
  - Death [Fatal]
